FAERS Safety Report 5277204-1 (Version None)
Quarter: 2007Q1

REPORT INFORMATION
  Report Type: 
  Country: None (occurrence: None)
  Receive Date: 20070327
  Receipt Date: 20070322
  Transmission Date: 20070707
  Serious: Yes (Hospitalization)
  Sender: FDA-Public Use
  Company Number: AU-BRISTOL-MYERS SQUIBB COMPANY-13613732

PATIENT
  Sex: Female

DRUGS (1)
  1. IRBESARTAN + HYDROCHLOROTHIAZIDE [Suspect]
     Route: 048

REACTIONS (3)
  - DEHYDRATION [None]
  - HEAT EXHAUSTION [None]
  - LETHARGY [None]
